FAERS Safety Report 10679857 (Version 3)
Quarter: 2015Q1

REPORT INFORMATION
  Report Type: Spontaneous
  Country: US (occurrence: US)
  Receive Date: 20141229
  Receipt Date: 20150330
  Transmission Date: 20150720
  Serious: No
  Sender: FDA-Public Use
  Company Number: US-PFIZER INC-2014355083

PATIENT
  Age: 55 Year
  Sex: Female
  Weight: 79.37 kg

DRUGS (3)
  1. LYRICA [Suspect]
     Active Substance: PREGABALIN
     Dosage: 75 MG CAPSULE ONE IN MORNING 3 AT NIGHT AND AN EXTRA ONE IF NEEDED
     Dates: start: 200503
  2. LYRICA [Suspect]
     Active Substance: PREGABALIN
     Indication: FIBROMYALGIA
     Dosage: 75 MG, (5 X 75MG, ONE IN THE MORNING, 3 IN THE AFTERNOON AND ANOTHER 75MG DURING THE DAY)
  3. LYRICA [Suspect]
     Active Substance: PREGABALIN
     Indication: FATIGUE
     Dosage: 100 MG, 4X/DAY (100MG FOR THE MORNING, TAKE THE LAST THREE AT NIGHT)

REACTIONS (4)
  - Therapeutic response unexpected [Unknown]
  - Drug intolerance [Unknown]
  - Pre-existing condition improved [Unknown]
  - Impaired work ability [Unknown]
